FAERS Safety Report 4760193-3 (Version None)
Quarter: 2005Q3

REPORT INFORMATION
  Report Type: 
  Country: None (occurrence: None)
  Receive Date: 20050902
  Receipt Date: 20050822
  Transmission Date: 20060218
  Serious: Yes (Other)
  Sender: FDA-Public Use
  Company Number: GB-GILEAD-2005-0008646

PATIENT
  Age: 27 Year
  Sex: Female
  Weight: 62 kg

DRUGS (4)
  1. VIREAD [Suspect]
     Indication: HIV INFECTION
     Route: 048
     Dates: start: 20050412, end: 20050615
  2. EMTRIVA [Concomitant]
     Route: 048
     Dates: start: 20050412
  3. EFAVIRENZ [Concomitant]
     Route: 048
     Dates: start: 20050412
  4. SEPTRIN [Concomitant]
     Route: 048
     Dates: start: 20050412

REACTIONS (7)
  - ACIDOSIS [None]
  - ALANINE AMINOTRANSFERASE INCREASED [None]
  - HYPONATRAEMIA [None]
  - NOCTURIA [None]
  - POLYDIPSIA [None]
  - POLYURIA [None]
  - RENAL TUBULAR DISORDER [None]
